FAERS Safety Report 5130511-5 (Version None)
Quarter: 2006Q4

REPORT INFORMATION
  Report Type: 
  Country: None (occurrence: None)
  Receive Date: 20061019
  Receipt Date: 20061010
  Transmission Date: 20070319
  Serious: Yes (Life-Threatening)
  Sender: FDA-Public Use
  Company Number: PAD 06-197

PATIENT
  Age: 60 Year
  Sex: Female

DRUGS (6)
  1. CEFUROXIME [Suspect]
     Dosage: 2UNIT TWICE PER DAY
     Route: 048
     Dates: start: 20060804, end: 20060817
  2. PREVISCAN [Suspect]
     Indication: JUGULAR VEIN THROMBOSIS
     Route: 048
     Dates: start: 20060215, end: 20060804
  3. DURAGESIC-100 [Suspect]
     Route: 062
     Dates: start: 20040601
  4. LEXOMIL [Concomitant]
     Route: 065
  5. SECTRAL [Concomitant]
     Route: 065
  6. AUGMENTIN [Concomitant]
     Indication: PNEUMOCOCCAL INFECTION
     Route: 065
     Dates: start: 20060818

REACTIONS (4)
  - ACQUIRED HAEMOPHILIA [None]
  - COAGULATION FACTOR DECREASED [None]
  - HAEMOPTYSIS [None]
  - KAOLIN CEPHALIN CLOTTING TIME PROLONGED [None]
